FAERS Safety Report 25785544 (Version 1)
Quarter: 2025Q3

REPORT INFORMATION
  Report Type: Spontaneous
  Country: CN (occurrence: CN)
  Receive Date: 20250910
  Receipt Date: 20250910
  Transmission Date: 20251021
  Serious: Yes (Other)
  Sender: GE HEALTHCARE
  Company Number: None

PATIENT
  Age: 74 Year
  Sex: Female
  Weight: 65 kg

DRUGS (1)
  1. VISIPAQUE [Suspect]
     Active Substance: IODIXANOL
     Indication: Magnetic resonance imaging
     Route: 042
     Dates: start: 20250819

REACTIONS (2)
  - Rash [Recovering/Resolving]
  - Contrast media allergy [Recovering/Resolving]

NARRATIVE: CASE EVENT DATE: 20250821
